FAERS Safety Report 7545672-8 (Version None)
Quarter: 2011Q2

REPORT INFORMATION
  Report Type: 
  Country: None (occurrence: None)
  Receive Date: 20110614
  Receipt Date: 20110607
  Transmission Date: 20111010
  Serious: Yes (Congenital Anomaly, Other)
  Sender: FDA-Public Use
  Company Number: US-BRISTOL-MYERS SQUIBB COMPANY-14767123

PATIENT
  Sex: Female
  Weight: 3 kg

DRUGS (9)
  1. TRUVADA [Suspect]
     Dosage: UNK TO 17NOV2008;INTERRUPTED ON 16NOV2008M, INTERRUPTED:11JUL09
     Route: 064
  2. ABILIFY [Concomitant]
     Route: 064
  3. ALBUTEROL INHALER [Concomitant]
     Route: 064
  4. CANNABIS [Concomitant]
  5. NORVIR [Suspect]
     Route: 064
     Dates: start: 20081117, end: 20090711
  6. REYATAZ [Suspect]
     Route: 064
     Dates: start: 20081117, end: 20090711
  7. EMTRIVA [Suspect]
     Route: 064
  8. PROPYLTHIOURACIL [Concomitant]
     Route: 064
  9. SUSTIVA [Suspect]
     Dosage: INTERRUPTED ON 16NOV2008,PO
     Route: 064
     Dates: end: 20081116

REACTIONS (5)
  - VENTRICULAR SEPTAL DEFECT [None]
  - BREECH PRESENTATION [None]
  - MATERNAL DRUGS AFFECTING FOETUS [None]
  - CAESAREAN SECTION [None]
  - FOETAL TOBACCO EXPOSURE [None]
